FAERS Safety Report 14374785 (Version 1)
Quarter: 2018Q1

REPORT INFORMATION
  Report Type: Report from Study
  Country: US (occurrence: US)
  Receive Date: 20180111
  Receipt Date: 20180111
  Transmission Date: 20180509
  Serious: Yes (Other)
  Sender: FDA-Public Use
  Company Number: US-ROCHE-2051148

PATIENT
  Sex: Female
  Weight: 72.64 kg

DRUGS (2)
  1. ACTEMRA [Suspect]
     Active Substance: TOCILIZUMAB
     Indication: RHEUMATOID ARTHRITIS
     Dosage: ONGOING:NO
     Route: 042
     Dates: end: 201609
  2. RITUXAN [Suspect]
     Active Substance: RITUXIMAB
     Indication: PRODUCT USED FOR UNKNOWN INDICATION
     Dosage: ONCE THEN AGAIN IN 2 WEEKS THEN EVERY 5 MONTHS ;ONGOING: YES
     Route: 042
     Dates: start: 201703

REACTIONS (1)
  - Fallopian tube cancer [Unknown]
